FAERS Safety Report 8621025-6 (Version None)
Quarter: 2012Q3

REPORT INFORMATION
  Report Type: 
  Country: None (occurrence: None)
  Receive Date: 20120824
  Receipt Date: 20120817
  Transmission Date: 20120928
  Serious: No
  Sender: FDA-Public Use
  Company Number: US-009507513-1208USA008464

PATIENT

DRUGS (3)
  1. LEXAPRO [Concomitant]
  2. IMPLANON [Suspect]
     Indication: CONTRACEPTION
     Dosage: UNK
     Route: 059
     Dates: start: 20101112
  3. NEURONTIN [Concomitant]

REACTIONS (3)
  - MENORRHAGIA [None]
  - IMPLANT SITE PRURITUS [None]
  - DEVICE DISLOCATION [None]
